FAERS Safety Report 5939213-6 (Version None)
Quarter: 2008Q4

REPORT INFORMATION
  Report Type: 
  Country: None (occurrence: None)
  Receive Date: 20081103
  Receipt Date: 20081020
  Transmission Date: 20090506
  Serious: Yes (Hospitalization)
  Sender: FDA-Public Use
  Company Number: PHHO2008DE12550

PATIENT
  Sex: Male
  Weight: 80 kg

DRUGS (9)
  1. EXELON [Suspect]
     Dosage: NO TREATMENT
  2. BLINDED NO TREATMENT RECEIVED NOMED [Suspect]
     Dosage: NO TREATMENT
  3. EXELON [Suspect]
     Indication: DEMENTIA ALZHEIMER'S TYPE
     Dosage: 10 CM2 PATCH
     Route: 062
     Dates: start: 20080411
  4. ASS ^ISIS^ [Concomitant]
     Indication: CORONARY ARTERY DISEASE
  5. ENALAPRIL MALEATE [Concomitant]
     Indication: CORONARY ARTERY DISEASE
  6. ALLOPURINOL [Concomitant]
     Indication: HYPERURICAEMIA
  7. BISOPROLOL FUMARATE [Concomitant]
  8. PRAVASTATIN [Concomitant]
  9. FINASTERIDE [Concomitant]

REACTIONS (2)
  - MALAISE [None]
  - RENAL DISORDER [None]
